FAERS Safety Report 9401879 (Version 7)
Quarter: 2015Q1

REPORT INFORMATION
  Report Type: Spontaneous
  Country: US (occurrence: US)
  Receive Date: 20130716
  Receipt Date: 20150203
  Transmission Date: 20150721
  Serious: Yes (Hospitalization, Other)
  Sender: FDA-Public Use
  Company Number: US-009507513-1307USA004638

PATIENT
  Sex: Female
  Weight: 64.4 kg

DRUGS (7)
  1. FOSAMAX [Suspect]
     Active Substance: ALENDRONATE SODIUM
     Indication: OSTEOPOROSIS
     Dosage: 70 MG, QW
     Route: 048
     Dates: start: 199903
  2. VITAMIN B COMPLEX [Concomitant]
     Active Substance: CYANOCOBALAMIN\DEXPANTHENOL\NIACINAMIDE\PYRIDOXINE HYDROCHLORIDE\RIBOFLAVIN 5^-PHOSPHATE SODIUM\THIAMINE HYDROCHLORIDE\VITAMIN B COMPLEX
     Dosage: 30 ML, QD
     Route: 048
     Dates: start: 1998
  3. FOSAMAX PLUS D [Suspect]
     Active Substance: ALENDRONATE SODIUM\CHOLECALCIFEROL
     Indication: OSTEOPOROSIS
     Dosage: 70 MG, 2800, QW
     Route: 048
     Dates: start: 200604, end: 200902
  4. ASCORBIC ACID. [Concomitant]
     Active Substance: ASCORBIC ACID
     Dosage: 500 MG, QD
     Route: 048
     Dates: start: 1998
  5. VITAMINS (UNSPECIFIED) [Concomitant]
     Active Substance: VITAMINS
     Dosage: UNK, QD
     Route: 048
     Dates: start: 1998
  6. ALENDRONATE SODIUM. [Suspect]
     Active Substance: ALENDRONATE SODIUM
     Dosage: 70 MG, QW
     Route: 048
  7. VITAMIN E [Concomitant]
     Active Substance: .ALPHA.-TOCOPHEROL
     Dosage: 400 IU, QD
     Route: 048
     Dates: start: 1998

REACTIONS (27)
  - Scoliosis [Unknown]
  - Intramedullary rod insertion [Unknown]
  - Bursitis [Unknown]
  - Haemorrhagic anaemia [Recovered/Resolved]
  - Coronary artery bypass [Unknown]
  - Tonsillectomy [Unknown]
  - Vertigo [Not Recovered/Not Resolved]
  - Oedema peripheral [Unknown]
  - Fall [Unknown]
  - Muscular weakness [Unknown]
  - Muscular weakness [Unknown]
  - Packed red blood cell transfusion [Unknown]
  - Hypertension [Not Recovered/Not Resolved]
  - Device defective [Unknown]
  - Cough [Unknown]
  - Arrhythmia [Unknown]
  - Femur fracture [Recovered/Resolved with Sequelae]
  - Intramedullary rod insertion [Recovered/Resolved]
  - Major depression [Not Recovered/Not Resolved]
  - Abdominal tenderness [Unknown]
  - Joint swelling [Unknown]
  - Hiatus hernia [Unknown]
  - Pelvic fracture [Unknown]
  - Atrophy [Unknown]
  - Back pain [Unknown]
  - Gait disturbance [Unknown]
  - Dizziness [Unknown]

NARRATIVE: CASE EVENT DATE: 20060803
